FAERS Safety Report 21410488 (Version 1)
Quarter: 2022Q4

REPORT INFORMATION
  Report Type: Spontaneous
  Country: US (occurrence: None)
  Receive Date: 20221003
  Receipt Date: 20221003
  Transmission Date: 20230113
  Serious: Yes (Hospitalization)
  Sender: FDA-Public Use
  Company Number: None

PATIENT
  Sex: Female

DRUGS (1)
  1. TOBRAMYCIN INHALATION SOLUTION [Suspect]
     Active Substance: TOBRAMYCIN
     Indication: Bronchiectasis
     Dosage: 300MG BY MOUTH?TWICE DAILY FOR 7 DAYS ON THEN 7 DAYS OFF
     Route: 048
     Dates: start: 20200807

REACTIONS (1)
  - Urinary tract infection [None]
